FAERS Safety Report 7948536-0 (Version None)
Quarter: 2011Q4

REPORT INFORMATION
  Report Type: 
  Country: None (occurrence: None)
  Receive Date: 20111128
  Receipt Date: 20111128
  Transmission Date: 20120403
  Serious: Yes (Hospitalization)
  Sender: FDA-Public Use
  Company Number: None

PATIENT
  Sex: Female
  Weight: 95.3 kg

DRUGS (1)
  1. CISPLATIN [Suspect]
     Dosage: 396 MG
     Dates: end: 20080603

REACTIONS (4)
  - HYPOPHAGIA [None]
  - RENAL FAILURE ACUTE [None]
  - WEIGHT DECREASED [None]
  - RADIATION DYSPHAGIA [None]
